FAERS Safety Report 21563129 (Version 1)
Quarter: 2022Q4

REPORT INFORMATION
  Report Type: Spontaneous
  Country: US (occurrence: US)
  Receive Date: 20221107
  Receipt Date: 20221107
  Transmission Date: 20230112
  Serious: No
  Sender: FDA-Public Use
  Company Number: US-SA-SAC20221102001971

PATIENT
  Sex: Female

DRUGS (2)
  1. DUPIXENT [Suspect]
     Active Substance: DUPILUMAB
     Indication: Dermatitis atopic
     Dosage: 300 MG, QOW
     Route: 058
     Dates: start: 202108
  2. RINVOQ [Concomitant]
     Active Substance: UPADACITINIB
     Dosage: UNK, STARTED IN OCTOBER (YEAR UNSPECIFIED)

REACTIONS (2)
  - Acne [Unknown]
  - Oral herpes [Unknown]
